FAERS Safety Report 5604616-6 (Version None)
Quarter: 2008Q1

REPORT INFORMATION
  Report Type: 
  Country: None (occurrence: None)
  Receive Date: 20080113
  Receipt Date: 20080111
  Transmission Date: 20080703
  Serious: Yes (Other)
  Sender: FDA-Public Use
  Company Number: 2008001338

PATIENT
  Age: 53 Year
  Sex: Female

DRUGS (1)
  1. LUBRIDERM DAILY MOISTURE (NO ACTIVE INGREDIENT) [Suspect]
     Indication: DRY SKIN
     Dosage: SMALL AMOUNT 3 TIMES, TOPICAL
     Route: 061
     Dates: start: 20080109, end: 20080110

REACTIONS (2)
  - BURNING SENSATION [None]
  - EYE PAIN [None]
